FAERS Safety Report 21987481 (Version 1)
Quarter: 2023Q1

REPORT INFORMATION
  Report Type: Spontaneous
  Country: GB (occurrence: GB)
  Receive Date: 20230214
  Receipt Date: 20230214
  Transmission Date: 20230418
  Serious: No
  Sender: FDA-Public Use
  Company Number: None

PATIENT
  Age: 79 Year
  Sex: Female
  Weight: 53 kg

DRUGS (8)
  1. CEPHALEXIN [Suspect]
     Active Substance: CEPHALEXIN
     Indication: Product used for unknown indication
     Dosage: 500 MILLIGRAM, CAPSULES
     Route: 048
  2. AMOXICILLIN [Concomitant]
     Active Substance: AMOXICILLIN
     Indication: Product used for unknown indication
     Dosage: 500 MG CAPSULES, TID (TAKE ONE CAPSULE THREE TIMES A DAY FOR 5 DAYS)
     Route: 065
     Dates: start: 20221118
  3. LACTULOSE [Concomitant]
     Active Substance: LACTULOSE
     Indication: Constipation
     Dosage: 10 MLS TO 15 MLS TWICE A DAY, WHEN REQUIRED FOR CONSTIPATION)
     Route: 065
     Dates: start: 20221011
  4. LANSOPRAZOLE [Concomitant]
     Active Substance: LANSOPRAZOLE
     Indication: Product used for unknown indication
     Dosage: 15MG, TAKE ONE DAILY (QD)
     Route: 065
     Dates: start: 20220920, end: 20221122
  5. LANSOPRAZOLE [Concomitant]
     Active Substance: LANSOPRAZOLE
     Dosage: 15MG, TAKE ONE DAILY (QD)
     Route: 065
     Dates: start: 20220920
  6. LANSOPRAZOLE [Concomitant]
     Active Substance: LANSOPRAZOLE
     Dosage: 15 MG, TAKE ONE DAILY (QD)
     Route: 065
     Dates: start: 20221122
  7. PROCHLORPERAZINE [Concomitant]
     Active Substance: PROCHLORPERAZINE
     Indication: Product used for unknown indication
     Dosage: 5MG, TID (TAKE ONE TABLET THREE TIMES A DAY WHEN REQUIRED)
     Route: 065
     Dates: start: 20221011
  8. VERAPAMIL [Concomitant]
     Active Substance: VERAPAMIL HYDROCHLORIDE
     Indication: Product used for unknown indication
     Dosage: 80 MG, TID
     Route: 065
     Dates: start: 20221021

REACTIONS (1)
  - Lip ulceration [Recovered/Resolved]

NARRATIVE: CASE EVENT DATE: 20221125
